FAERS Safety Report 9820090 (Version 1)
Quarter: 2014Q1

REPORT INFORMATION
  Report Type: Spontaneous
  Country: US (occurrence: US)
  Receive Date: 20140116
  Receipt Date: 20140116
  Transmission Date: 20141002
  Serious: Yes (Hospitalization, Other)
  Sender: FDA-Public Use
  Company Number: US-JNJFOC-20140102768

PATIENT
  Age: 37 Year
  Sex: Female

DRUGS (8)
  1. HALOPERIDOL [Suspect]
     Indication: OBSESSIVE-COMPULSIVE DISORDER
     Route: 065
  2. HALOPERIDOL [Suspect]
     Indication: DEPRESSION
     Route: 065
  3. QUETIAPINE [Suspect]
     Indication: OBSESSIVE-COMPULSIVE DISORDER
     Route: 065
  4. QUETIAPINE [Suspect]
     Indication: DEPRESSION
     Route: 065
  5. LORAZEPAM [Suspect]
     Indication: OBSESSIVE-COMPULSIVE DISORDER
     Route: 065
  6. LORAZEPAM [Suspect]
     Indication: DEPRESSION
     Route: 065
  7. FLUOXETINE [Suspect]
     Indication: OBSESSIVE-COMPULSIVE DISORDER
     Route: 065
  8. FLUOXETINE [Suspect]
     Indication: DEPRESSION
     Route: 065

REACTIONS (3)
  - Suicidal behaviour [Unknown]
  - Exposure during pregnancy [Recovered/Resolved]
  - Off label use [Unknown]
